FAERS Safety Report 14816696 (Version 6)
Quarter: 2020Q1

REPORT INFORMATION
  Report Type: Report from Study
  Country: US (occurrence: US)
  Receive Date: 20180426
  Receipt Date: 20200117
  Transmission Date: 20200409
  Serious: Yes (Death, Hospitalization, Other)
  Sender: FDA-Public Use
  Company Number: US-ACTELION-A-NJ2017-159643

PATIENT
  Age: 63 Year
  Sex: Female
  Weight: 76.19 kg

DRUGS (6)
  1. VELETRI [Suspect]
     Active Substance: EPOPROSTENOL
     Indication: PULMONARY HYPERTENSION
     Dosage: 54.3 NG/KG, PER MIN
     Route: 042
  2. BACTRIM [Concomitant]
     Active Substance: SULFAMETHOXAZOLE\TRIMETHOPRIM
  3. VELETRI [Suspect]
     Active Substance: EPOPROSTENOL
     Dosage: 58.4 NG/KG, PER MIN
     Route: 042
  4. PREDNISONE. [Concomitant]
     Active Substance: PREDNISONE
  5. VELETRI [Suspect]
     Active Substance: EPOPROSTENOL
     Dosage: 65 NG/KG, CONT INFUS
     Route: 042
  6. IRON [Concomitant]
     Active Substance: IRON

REACTIONS (18)
  - Dyspnoea [Unknown]
  - Syncope [Unknown]
  - Pain in jaw [Not Recovered/Not Resolved]
  - Dyspnoea exertional [Not Recovered/Not Resolved]
  - Weight increased [Unknown]
  - Arthritis [Unknown]
  - Malaise [Unknown]
  - Dizziness [Unknown]
  - Flushing [Not Recovered/Not Resolved]
  - Death [Fatal]
  - Sarcoidosis [Unknown]
  - Cardiac pacemaker insertion [Unknown]
  - Rash [Unknown]
  - Oedema peripheral [Unknown]
  - Hypoxia [Unknown]
  - Arrhythmia [Unknown]
  - Cataract operation [Unknown]
  - Diarrhoea [Unknown]

NARRATIVE: CASE EVENT DATE: 20170823
